FAERS Safety Report 5324991-X (Version None)
Quarter: 2007Q2

REPORT INFORMATION
  Report Type: 
  Country: None (occurrence: None)
  Receive Date: 20070515
  Receipt Date: 20070504
  Transmission Date: 20071010
  Serious: Yes (Hospitalization)
  Sender: FDA-Public Use
  Company Number: CA-AMGEN-US213432

PATIENT
  Sex: Male

DRUGS (2)
  1. ENBREL [Suspect]
     Indication: JUVENILE ARTHRITIS
     Route: 065
     Dates: start: 20040901
  2. PREDNISONE TAB [Concomitant]

REACTIONS (1)
  - ANAL INFECTION [None]
